FAERS Safety Report 6639575-0 (Version None)
Quarter: 2010Q1

REPORT INFORMATION
  Report Type: 
  Country: None (occurrence: None)
  Receive Date: 20100318
  Receipt Date: 20100308
  Transmission Date: 20100710
  Serious: Yes (Other)
  Sender: FDA-Public Use
  Company Number: CA-JNJFOC-20090700310

PATIENT
  Sex: Male
  Weight: 52 kg

DRUGS (8)
  1. REMICADE [Suspect]
     Indication: RHEUMATOID ARTHRITIS
     Route: 042
  2. REMICADE [Suspect]
     Route: 042
  3. AGGRENOX [Concomitant]
  4. FOSAMAX [Concomitant]
  5. FOLIC ACID [Concomitant]
  6. VITAMIN B-12 [Concomitant]
  7. METHOTREXATE [Concomitant]
  8. PREVACID [Concomitant]

REACTIONS (3)
  - BALANCE DISORDER [None]
  - DIPLOPIA [None]
  - DRY MOUTH [None]
